FAERS Safety Report 13158069 (Version 1)
Quarter: 2017Q1

REPORT INFORMATION
  Report Type: Spontaneous
  Country: US (occurrence: US)
  Receive Date: 20170124
  Receipt Date: 20170124
  Transmission Date: 20170428
  Serious: Yes (Death)
  Sender: FDA-Public Use
  Company Number: None

PATIENT
  Age: 7 Year
  Sex: Male
  Weight: 15.3 kg

DRUGS (16)
  1. WHEELCHAIR [Concomitant]
     Active Substance: DEVICE
  2. PROBIOTICS [Concomitant]
     Active Substance: PROBIOTICS NOS
  3. PERISTEEN ENEMA [Concomitant]
  4. FLORADIX IRON SUPPLEMENT [Concomitant]
  5. THERALAC PROBIOTICS [Concomitant]
  6. CIPROFLOXACIN HCL 250 MG [Suspect]
     Active Substance: CIPROFLOXACIN
     Indication: PROPHYLAXIS
     Dosage: .5 TABLET(S); CRUSHED AND GIVEN VIA GTUBE?
     Dates: start: 20160220, end: 20160222
  7. G/J TUBE [Concomitant]
  8. NORDIC NATURALS PRO ALGAE OIL [Concomitant]
  9. METHYLCOBALAMIN. [Concomitant]
     Active Substance: METHYLCOBALAMIN
  10. ENZALASE DIGESTIVE ENZYMES [Concomitant]
  11. TRUFIBER HYDROLYZED FIBER SUPPLEMENT [Concomitant]
  12. INDWELLING CATHETER [Concomitant]
  13. INTERMITTENT CATHETERIZATION [Concomitant]
  14. TRIAMCINALONE [Concomitant]
     Active Substance: TRIAMCINOLONE
  15. MULTI VITAMIN [Concomitant]
     Active Substance: VITAMINS
  16. VITAMIN D3 [Concomitant]
     Active Substance: CHOLECALCIFEROL

REACTIONS (4)
  - Diarrhoea [None]
  - Cardiac arrest [None]
  - Vomiting [None]
  - Seizure [None]

NARRATIVE: CASE EVENT DATE: 20160223
